FAERS Safety Report 23809303 (Version 1)
Quarter: 2024Q2

REPORT INFORMATION
  Report Type: Spontaneous
  Country: US (occurrence: US)
  Receive Date: 20240502
  Receipt Date: 20240502
  Transmission Date: 20240716
  Serious: No
  Sender: FDA-Public Use
  Company Number: US-UCBSA-2023016387

PATIENT
  Sex: Female

DRUGS (2)
  1. CIMZIA [Suspect]
     Active Substance: CERTOLIZUMAB PEGOL
     Indication: Rheumatoid arthritis
     Dosage: INJECT 2 SYRINGES SUBCUTANEOUSLY AT WEEKS 0, 2 AND 4.
     Route: 058
     Dates: start: 201908
  2. CIMZIA [Suspect]
     Active Substance: CERTOLIZUMAB PEGOL
     Dosage: MAINTENANCE DOSE, INJECT 2 SYRINGES SUBCUTANEOUSLY AT WEEKS 0, 2 AND 4.
     Route: 058

REACTIONS (1)
  - Muscle spasms [Unknown]
